FAERS Safety Report 9936987 (Version 1)
Quarter: 2014Q1

REPORT INFORMATION
  Report Type: Spontaneous
  Country: US (occurrence: None)
  Receive Date: 20140115
  Receipt Date: 20140115
  Transmission Date: 20141002
  Serious: No
  Sender: FDA-Public Use
  Company Number: 2013US002551

PATIENT
  Age: 76 Year
  Sex: Female
  Weight: 79 kg

DRUGS (11)
  1. ICLUSIG (PONATINIB) TABLET, 45MG [Suspect]
     Indication: ACUTE LYMPHOCYTIC LEUKAEMIA
     Route: 048
     Dates: start: 20130523
  2. SYNTHROID (LEVOTHYROXINE SODIUM) [Concomitant]
  3. VITAMIN D (VITAMIN D) [Concomitant]
  4. LASIX (FUROSEMIDE) [Concomitant]
  5. ALBUTEROL (ALBUTEROL) [Concomitant]
  6. ZOLOFT (SERTRALINE HYDROCHLORIDE) [Concomitant]
  7. OXYCODONE (OXYCODONE) [Concomitant]
  8. LISINOPRIL (LISINOPRIL) [Concomitant]
  9. K-DUR (POTASSIUM CHLORIDE) [Concomitant]
  10. NAPROSYN (NAPROXEN SODIUM) [Concomitant]
  11. NEURONTIN (GABAPENTIN) [Concomitant]

REACTIONS (5)
  - White blood cell count increased [None]
  - Gastrooesophageal reflux disease [None]
  - Blister [None]
  - Alopecia [None]
  - Urinary tract infection [None]
